FAERS Safety Report 4714750-0 (Version None)
Quarter: 2005Q3

REPORT INFORMATION
  Report Type: 
  Country: None (occurrence: None)
  Receive Date: 20050713
  Receipt Date: 20050627
  Transmission Date: 20060218
  Serious: Yes (Death, Hospitalization)
  Sender: FDA-Public Use
  Company Number: 1846

PATIENT
  Sex: Female

DRUGS (3)
  1. AVINZA [Suspect]
     Indication: CARDIAC FAILURE CONGESTIVE
     Dosage: 30 MG QD PO
     Route: 048
  2. AVINZA [Suspect]
     Indication: CHRONIC OBSTRUCTIVE PULMONARY DISEASE
     Dosage: 30 MG QD PO
     Route: 048
  3. AVINZA [Suspect]
     Indication: HYPERTENSION
     Dosage: 30 MG QD PO
     Route: 048

REACTIONS (2)
  - LETHARGY [None]
  - PNEUMONIA ASPIRATION [None]
